FAERS Safety Report 24303021 (Version 1)
Quarter: 2024Q3

REPORT INFORMATION
  Report Type: Spontaneous
  Country: US (occurrence: US)
  Receive Date: 20240910
  Receipt Date: 20240910
  Transmission Date: 20241016
  Serious: No
  Sender: Haleon PLC
  Company Number: US-HALEON-2196046

PATIENT
  Age: 77 Year
  Sex: Male

DRUGS (3)
  1. FLONASE SENSIMIST ALLERGY RELIEF [Suspect]
     Active Substance: FLUTICASONE FUROATE
     Indication: Paranasal sinus discomfort
     Dates: start: 20240907
  2. FLONASE SENSIMIST ALLERGY RELIEF [Suspect]
     Active Substance: FLUTICASONE FUROATE
     Indication: Upper-airway cough syndrome
  3. FLONASE SENSIMIST ALLERGY RELIEF [Suspect]
     Active Substance: FLUTICASONE FUROATE
     Indication: Sinus congestion

REACTIONS (5)
  - Penile pain [Unknown]
  - Product use in unapproved indication [Unknown]
  - Anorectal discomfort [Unknown]
  - Proctalgia [Unknown]
  - Penile burning sensation [Unknown]

NARRATIVE: CASE EVENT DATE: 20240908
